FAERS Safety Report 7162524-6 (Version None)
Quarter: 2010Q4

REPORT INFORMATION
  Report Type: 
  Country: None (occurrence: None)
  Receive Date: 20101215
  Receipt Date: 20101208
  Transmission Date: 20110411
  Serious: Yes (Other)
  Sender: FDA-Public Use
  Company Number: US-JNJFOC-20100907560

PATIENT
  Sex: Male
  Weight: 68.04 kg

DRUGS (2)
  1. NUCYNTA [Suspect]
     Indication: GALLBLADDER PAIN
     Dosage: ONE DOSE ONLY
     Route: 048
  2. SUBOXONE [Concomitant]
     Indication: ILL-DEFINED DISORDER
     Route: 048

REACTIONS (2)
  - PHARYNGEAL OEDEMA [None]
  - WHEEZING [None]
